FAERS Safety Report 6453834-6 (Version None)
Quarter: 2009Q4

REPORT INFORMATION
  Report Type: 
  Country: None (occurrence: None)
  Receive Date: 20091123
  Receipt Date: 20091123
  Transmission Date: 20100525
  Serious: Yes (Other)
  Sender: FDA-Public Use
  Company Number: None

PATIENT
  Age: 16 Year
  Sex: Female
  Weight: 52.1637 kg

DRUGS (7)
  1. XYZAL [Suspect]
     Indication: ANAPHYLACTIC REACTION
     Dates: start: 20091116, end: 20091118
  2. CLARINEX [Concomitant]
  3. ZANTAC [Concomitant]
  4. SINGULAIR [Concomitant]
  5. MEDROL [Concomitant]
  6. EPIPEN [Concomitant]
  7. BENADRY [Concomitant]

REACTIONS (4)
  - FATIGUE [None]
  - FEELING ABNORMAL [None]
  - MEMORY IMPAIRMENT [None]
  - SOMNOLENCE [None]
